FAERS Safety Report 12867151 (Version 1)
Quarter: 2016Q4

REPORT INFORMATION
  Report Type: Spontaneous
  Country: NL (occurrence: NL)
  Receive Date: 20161020
  Receipt Date: 20161020
  Transmission Date: 20170207
  Serious: Yes (Disabling)
  Sender: FDA-Public Use
  Company Number: NL-009507513-1610NLD009477

PATIENT
  Age: 20 Year
  Sex: Female
  Weight: 66 kg

DRUGS (2)
  1. MOMETASONE FUROATE. [Suspect]
     Active Substance: MOMETASONE FUROATE
     Indication: SEASONAL ALLERGY
     Dosage: 2 TIMES A DAY 1 UNIT(S), EXTRA INFO: 2 TIMES A DAY 1 SPRAY IN EACH NOSTRIL. STRENGHT: 50UG/DO
     Route: 045
     Dates: start: 201205
  2. LEVOCETIRIZINE DIHYDROCHLORIDE. [Concomitant]
     Active Substance: LEVOCETIRIZINE DIHYDROCHLORIDE
     Dosage: 1 TIME A DAY 1 UNIT(S)
     Route: 048
     Dates: start: 201205, end: 201510

REACTIONS (2)
  - Fatigue [Recovering/Resolving]
  - Blood cortisol decreased [Recovering/Resolving]

NARRATIVE: CASE EVENT DATE: 201510
